FAERS Safety Report 13003923 (Version 2)
Quarter: 2017Q1

REPORT INFORMATION
  Report Type: Spontaneous
  Country: US (occurrence: US)
  Receive Date: 20161206
  Receipt Date: 20170214
  Transmission Date: 20170428
  Serious: No
  Sender: FDA-Public Use
  Company Number: US-ELI_LILLY_AND_COMPANY-US201612000838

PATIENT
  Sex: Female

DRUGS (4)
  1. HUMALOG [Suspect]
     Active Substance: INSULIN LISPRO
     Dosage: UNK, TID
  2. LANTUS [Concomitant]
     Active Substance: INSULIN GLARGINE
  3. HUMALOG [Suspect]
     Active Substance: INSULIN LISPRO
     Dosage: UNK, TID
  4. HUMALOG [Suspect]
     Active Substance: INSULIN LISPRO
     Indication: TYPE 2 DIABETES MELLITUS
     Dosage: UNK UNK, TID
     Route: 065
     Dates: start: 2001, end: 201601

REACTIONS (10)
  - Wrong technique in product usage process [Unknown]
  - Diabetes mellitus [Unknown]
  - Weight increased [Not Recovered/Not Resolved]
  - Retinopathy [Not Recovered/Not Resolved]
  - Blood glucose decreased [Unknown]
  - Injury associated with device [Unknown]
  - Tremor [Unknown]
  - Hyperhidrosis [Unknown]
  - Incorrect product storage [Unknown]
  - Diabetic retinopathy [Unknown]

NARRATIVE: CASE EVENT DATE: 2001
